FAERS Safety Report 18293673 (Version 2)
Quarter: 2020Q4

REPORT INFORMATION
  Report Type: Other
  Country: US (occurrence: US)
  Receive Date: 20200921
  Receipt Date: 20201221
  Transmission Date: 20210113
  Serious: No
  Sender: FDA-Public Use
  Company Number: US-ACORDA-ACO_165867_2020

PATIENT
  Sex: Female

DRUGS (8)
  1. INBRIJA [Suspect]
     Active Substance: LEVODOPA
     Indication: PARKINSON^S DISEASE
     Dosage: 84 MILLIGRAM, PRN. NOT TO EXCEED 5 DOSES A DAY
     Dates: start: 20200727
  2. RYTARY [Concomitant]
     Active Substance: CARBIDOPA\LEVODOPA
     Indication: PRODUCT USED FOR UNKNOWN INDICATION
     Dosage: 23.75/95 MG: 4 PILLS 4X/DAY
     Route: 065
  3. LATANOPROST. [Concomitant]
     Active Substance: LATANOPROST
     Indication: PRODUCT USED FOR UNKNOWN INDICATION
     Dosage: 0.005 PERCENT
     Route: 065
  4. INBRIJA [Suspect]
     Active Substance: LEVODOPA
     Indication: ON AND OFF PHENOMENON
  5. ATROPINE. [Concomitant]
     Active Substance: ATROPINE
     Indication: PRODUCT USED FOR UNKNOWN INDICATION
     Dosage: SOLUTION 1 PERCENT
     Route: 065
  6. DORZOL [Concomitant]
     Indication: PRODUCT USED FOR UNKNOWN INDICATION
     Dosage: 22.3/6.8 MG/ML
     Route: 065
  7. MIDODRINE [Concomitant]
     Active Substance: MIDODRINE
     Indication: PRODUCT USED FOR UNKNOWN INDICATION
     Dosage: 5 MG
     Route: 065
  8. ESCITALOPRAM [Concomitant]
     Active Substance: ESCITALOPRAM OXALATE
     Indication: PRODUCT USED FOR UNKNOWN INDICATION
     Dosage: 10 MG
     Route: 065

REACTIONS (3)
  - Saliva discolouration [Unknown]
  - Device issue [Unknown]
  - Cough [Unknown]
